FAERS Safety Report 6257178-7 (Version None)
Quarter: 2009Q3

REPORT INFORMATION
  Report Type: 
  Country: None (occurrence: None)
  Receive Date: 20090706
  Receipt Date: 20090701
  Transmission Date: 20100115
  Serious: Yes (Death)
  Sender: FDA-Public Use
  Company Number: US-AMGEN-US353740

PATIENT
  Sex: Female

DRUGS (3)
  1. NPLATE [Suspect]
     Indication: IDIOPATHIC THROMBOCYTOPENIC PURPURA
     Dates: start: 20090326, end: 20090402
  2. RITUXIMAB [Concomitant]
     Dates: start: 20050616
  3. IMMUNOGLOBULINS [Concomitant]
     Dates: start: 20080512

REACTIONS (1)
  - DEATH [None]
